FAERS Safety Report 17354115 (Version 1)
Quarter: 2020Q1

REPORT INFORMATION
  Report Type: Spontaneous
  Country: US (occurrence: US)
  Receive Date: 20200116
  Receipt Date: 20200116
  Transmission Date: 20200409
  Serious: No
  Sender: FDA-Public Use
  Company Number: None

PATIENT
  Sex: Male

DRUGS (1)
  1. SUTENT [Suspect]
     Active Substance: SUNITINIB MALATE
     Indication: SOFT TISSUE SARCOMA
     Route: 048
     Dates: end: 201910

REACTIONS (5)
  - Influenza like illness [None]
  - Skin erosion [None]
  - Stomatitis [None]
  - Pharyngitis streptococcal [None]
  - Pain in extremity [None]
